FAERS Safety Report 11211246 (Version 1)
Quarter: 2015Q2

REPORT INFORMATION
  Report Type: Spontaneous
  Country: US (occurrence: None)
  Receive Date: 20150619
  Receipt Date: 20150619
  Transmission Date: 20150821
  Serious: Yes (Life-Threatening, Hospitalization)
  Sender: FDA-Public Use
  Company Number: None

PATIENT
  Age: 28 Year
  Sex: Male
  Weight: 74.6 kg

DRUGS (5)
  1. ATENOLOL. [Concomitant]
     Active Substance: ATENOLOL
  2. ZOFRAN [Suspect]
     Active Substance: ONDANSETRON HYDROCHLORIDE
     Indication: NAUSEA
     Dosage: RECENT
     Route: 042
  3. THERAGRAN [Concomitant]
     Active Substance: VITAMINS
  4. PTU [Concomitant]
     Active Substance: PROPYLTHIOURACIL
  5. FERROUS SULFATE [Concomitant]
     Active Substance: FERROUS SULFATE\FERROUS SULFATE, DRIED

REACTIONS (3)
  - Pulseless electrical activity [None]
  - Anaphylactic reaction [None]
  - Cardiac arrest [None]

NARRATIVE: CASE EVENT DATE: 20150216
